FAERS Safety Report 7930582-4 (Version None)
Quarter: 2011Q4

REPORT INFORMATION
  Report Type: 
  Country: None (occurrence: None)
  Receive Date: 20111121
  Receipt Date: 20111109
  Transmission Date: 20120403
  Serious: Yes (Hospitalization, Other)
  Sender: FDA-Public Use
  Company Number: IE-MEDIMMUNE-MEDI-0013927

PATIENT
  Sex: Male
  Weight: 7.97 kg

DRUGS (4)
  1. SYNAGIS [Suspect]
     Route: 030
     Dates: start: 20111012, end: 20111012
  2. BECLOMETHASONE DIPROPIONATE [Concomitant]
  3. SYNAGIS [Suspect]
  4. ALBUTEROL SULFATE AUTOHALER [Concomitant]

REACTIONS (3)
  - RASH [None]
  - BRONCHIOLITIS [None]
  - VIRAL INFECTION [None]
